FAERS Safety Report 5952628-5 (Version None)
Quarter: 2008Q4

REPORT INFORMATION
  Report Type: 
  Country: None (occurrence: None)
  Receive Date: 20081028
  Receipt Date: 20080716
  Transmission Date: 20090506
  Serious: Yes (Other)
  Sender: FDA-Public Use
  Company Number: 170476USA

PATIENT
  Age: 52 Year
  Sex: Male

DRUGS (5)
  1. VINCRISTINE SULFATE [Suspect]
  2. RITUXIMAB [Suspect]
  3. CYCLOPHOSPHAMIDE [Suspect]
  4. DOXORUBICIN HCL [Suspect]
  5. CLOZAPINE [Suspect]
     Dosage: (100 MG)

REACTIONS (2)
  - AGRANULOCYTOSIS [None]
  - LEUKOPENIA [None]
